FAERS Safety Report 6909406-X (Version None)
Quarter: 2010Q3

REPORT INFORMATION
  Report Type: 
  Country: None (occurrence: None)
  Receive Date: 20100805
  Receipt Date: 20100727
  Transmission Date: 20110219
  Serious: Yes (Other)
  Sender: FDA-Public Use
  Company Number: US-CELGENEUS-163-21880-10072734

PATIENT
  Sex: Female

DRUGS (2)
  1. REVLIMID [Suspect]
     Indication: MULTIPLE MYELOMA
     Route: 048
     Dates: start: 20071101, end: 20070101
  2. REVLIMID [Suspect]
     Route: 048
     Dates: start: 20071201, end: 20100101

REACTIONS (1)
  - SYSTEMIC LUPUS ERYTHEMATOSUS [None]
